FAERS Safety Report 4760017-4 (Version None)
Quarter: 2005Q3

REPORT INFORMATION
  Report Type: 
  Country: None (occurrence: None)
  Receive Date: 20050902
  Receipt Date: 20050815
  Transmission Date: 20060218
  Serious: Yes (Other)
  Sender: FDA-Public Use
  Company Number: 2005AC01242

PATIENT
  Age: 63 Year
  Sex: Female

DRUGS (4)
  1. IRESSA [Suspect]
     Indication: LUNG NEOPLASM MALIGNANT
     Route: 048
  2. VERAPAMIL [Concomitant]
     Indication: HYPERTENSION
  3. ATENOLOL [Concomitant]
     Indication: HYPERTENSION
  4. HYDROCORTITHIAZIDE/TRIAMTERENE [Concomitant]
     Indication: HYPERTENSION

REACTIONS (4)
  - ACUTE FEBRILE NEUTROPHILIC DERMATOSIS [None]
  - DRUG ERUPTION [None]
  - PEMPHIGOID [None]
  - STEVENS-JOHNSON SYNDROME [None]
